FAERS Safety Report 5007457-6 (Version None)
Quarter: 2006Q2

REPORT INFORMATION
  Report Type: 
  Country: None (occurrence: None)
  Receive Date: 20060519
  Receipt Date: 20060519
  Transmission Date: 20061013
  Serious: Yes (Hospitalization)
  Sender: FDA-Public Use
  Company Number: None

PATIENT
  Sex: Male
  Weight: 98.4306 kg

DRUGS (6)
  1. LENALIDOMIDE    25MG     CELGENE [Suspect]
     Indication: MULTIPLE MYELOMA
     Dosage: 25MG   QD X 21 DAYS   PO
     Route: 048
     Dates: start: 20060428, end: 20060510
  2. DEXAMETHASONE 4MG TAB [Suspect]
     Indication: MULTIPLE MYELOMA
     Dosage: 40MG     D1-4,9-12,17-20    PO
     Route: 048
     Dates: start: 20060428, end: 20060509
  3. SYNTHROID [Concomitant]
  4. SOTALOL HCL [Concomitant]
  5. NEURONTIN [Concomitant]
  6. PLAVIX [Concomitant]

REACTIONS (6)
  - COLONIC POLYP [None]
  - DIZZINESS [None]
  - HAEMATOCRIT DECREASED [None]
  - HAEMOGLOBIN DECREASED [None]
  - LARGE INTESTINAL ULCER [None]
  - MELAENA [None]
